FAERS Safety Report 9791435 (Version 1)
Quarter: 2014Q1

REPORT INFORMATION
  Report Type: Report from Study
  Country: RU (occurrence: RU)
  Receive Date: 20140101
  Receipt Date: 20140101
  Transmission Date: 20141002
  Serious: Yes (Other)
  Sender: FDA-Public Use
  Company Number: PHHY2013RU153571

PATIENT
  Age: 56 Year
  Sex: 0

DRUGS (1)
  1. ACLASTA [Suspect]
     Dosage: UNK UKN, UNK
     Route: 042

REACTIONS (3)
  - Compression fracture [Unknown]
  - Multiple fractures [Unknown]
  - Spinal fracture [Unknown]
